FAERS Safety Report 7305244-7 (Version None)
Quarter: 2011Q1

REPORT INFORMATION
  Report Type: 
  Country: None (occurrence: None)
  Receive Date: 20110222
  Receipt Date: 20110215
  Transmission Date: 20110831
  Serious: Yes (Death, Other)
  Sender: FDA-Public Use
  Company Number: US-PFIZER INC-2010088750

PATIENT
  Sex: Male
  Weight: 59.8 kg

DRUGS (2)
  1. NEXIUM [Concomitant]
     Dosage: 40 MG, UNK
  2. SUTENT [Suspect]
     Indication: RENAL CELL CARCINOMA
     Dosage: 25 MG, UNK
     Route: 048
     Dates: start: 20100324, end: 20100601

REACTIONS (4)
  - CHRONIC MYELOID LEUKAEMIA [None]
  - NEOPLASM MALIGNANT [None]
  - DEATH [None]
  - SKIN ULCER [None]
